FAERS Safety Report 15450728 (Version 2)
Quarter: 2018Q4

REPORT INFORMATION
  Report Type: Spontaneous
  Country: US (occurrence: US)
  Receive Date: 20181001
  Receipt Date: 20181005
  Transmission Date: 20190204
  Serious: No
  Sender: FDA-Public Use
  Company Number: US-SA-2018SA264003

PATIENT
  Age: 59 Year
  Sex: Female

DRUGS (4)
  1. TOUJEO [Suspect]
     Active Substance: INSULIN GLARGINE
     Dosage: 20 UNK
     Dates: start: 201712
  2. TOUJEO [Suspect]
     Active Substance: INSULIN GLARGINE
     Indication: TYPE 2 DIABETES MELLITUS
     Dosage: 30 U
     Dates: start: 201712
  3. CELESTONE CHRONODOSE [Concomitant]
     Active Substance: BETAMETHASONE ACETATE\BETAMETHASONE SODIUM PHOSPHATE
  4. TRULICITY [Concomitant]
     Active Substance: DULAGLUTIDE

REACTIONS (5)
  - Nasopharyngitis [Unknown]
  - Glycosylated haemoglobin increased [Unknown]
  - Nasal congestion [Unknown]
  - Product dose omission [Unknown]
  - Blood glucose increased [Unknown]
